FAERS Safety Report 7202489-1 (Version None)
Quarter: 2010Q4

REPORT INFORMATION
  Report Type: 
  Country: None (occurrence: None)
  Receive Date: 20101229
  Receipt Date: 20101220
  Transmission Date: 20110411
  Serious: Yes (Other)
  Sender: FDA-Public Use
  Company Number: B0691445A

PATIENT
  Age: 49 Year
  Sex: Female

DRUGS (1)
  1. PAZOPANIB [Suspect]

REACTIONS (2)
  - EJECTION FRACTION DECREASED [None]
  - PULMONARY OEDEMA [None]
